FAERS Safety Report 16510744 (Version 1)
Quarter: 2019Q3

REPORT INFORMATION
  Report Type: Spontaneous
  Country: US (occurrence: US)
  Receive Date: 20190701
  Receipt Date: 20190701
  Transmission Date: 20191004
  Serious: Yes (Hospitalization)
  Sender: FDA-Public Use
  Company Number: None

PATIENT
  Age: 36 Year
  Sex: Male

DRUGS (17)
  1. ALLOPURINOL. [Concomitant]
     Active Substance: ALLOPURINOL
  2. FLUTICASONE. [Concomitant]
     Active Substance: FLUTICASONE
  3. ROSUVASTATIN. [Concomitant]
     Active Substance: ROSUVASTATIN
  4. LOSARTAN POTASSIUM. [Concomitant]
     Active Substance: LOSARTAN POTASSIUM
  5. NICOTINE. [Concomitant]
     Active Substance: NICOTINE
  6. SYMBICORT [Concomitant]
     Active Substance: BUDESONIDE\FORMOTEROL FUMARATE DIHYDRATE
  7. MYCOPHENOLATE 250MG CAP [Suspect]
     Active Substance: MYCOPHENOLATE MOFETIL
     Indication: RENAL TRANSPLANT
     Route: 048
     Dates: start: 20170227
  8. NIFEDIPINE. [Concomitant]
     Active Substance: NIFEDIPINE
  9. TACROLIMUS 1MG CAP [Suspect]
     Active Substance: TACROLIMUS
     Indication: RENAL TRANSPLANT
     Dosage: ?          OTHER FREQUENCY:4CQAM/3CQPM;?
     Route: 048
     Dates: start: 20170227
  10. VENTOLIN HFA [Concomitant]
     Active Substance: ALBUTEROL SULFATE
  11. VITAMIN B-1 [Concomitant]
     Active Substance: THIAMINE HYDROCHLORIDE
  12. CALCITRIOL. [Concomitant]
     Active Substance: CALCITRIOL
  13. FUROSEMIDE. [Concomitant]
     Active Substance: FUROSEMIDE
  14. AZELASTINE. [Concomitant]
     Active Substance: AZELASTINE HYDROCHLORIDE
  15. CARVEDILOL. [Concomitant]
     Active Substance: CARVEDILOL
  16. CENTRIZINE [Concomitant]
  17. FOLIC ACID. [Concomitant]
     Active Substance: FOLIC ACID

REACTIONS (3)
  - Therapy change [None]
  - Pneumonia [None]
  - Cardiac failure congestive [None]

NARRATIVE: CASE EVENT DATE: 19990301
